FAERS Safety Report 13303306 (Version 1)
Quarter: 2017Q1

REPORT INFORMATION
  Report Type: Spontaneous
  Country: US (occurrence: US)
  Receive Date: 20170307
  Receipt Date: 20170307
  Transmission Date: 20170428
  Serious: No
  Sender: FDA-Public Use
  Company Number: US-MYLANLABS-2016M1051392

PATIENT
  Sex: Female
  Weight: 62.13 kg

DRUGS (2)
  1. LIDOCAINE PATCH [Suspect]
     Active Substance: LIDOCAINE
     Dosage: UNK
  2. LIDOCAINE PATCH [Suspect]
     Active Substance: LIDOCAINE
     Indication: MYALGIA
     Dosage: UNK, PRN
     Route: 003
     Dates: start: 20160712, end: 20161112

REACTIONS (3)
  - Product quality issue [None]
  - Product adhesion issue [Unknown]
  - Drug ineffective for unapproved indication [Unknown]
